FAERS Safety Report 14377576 (Version 2)
Quarter: 2018Q1

REPORT INFORMATION
  Report Type: Spontaneous
  Country: US (occurrence: US)
  Receive Date: 20180111
  Receipt Date: 20180116
  Transmission Date: 20180509
  Serious: No
  Sender: FDA-Public Use
  Company Number: US-BAYER-2018-004089

PATIENT
  Sex: Male

DRUGS (2)
  1. AMOXICILLINE [Concomitant]
     Active Substance: AMOXICILLIN
     Indication: PELVIC INFECTION
     Dosage: UNK
     Dates: start: 2017
  2. CIPRO [Suspect]
     Active Substance: CIPROFLOXACIN HYDROCHLORIDE
     Indication: PELVIC INFECTION
     Dosage: 250 MG, BID
     Route: 048
     Dates: start: 2017

REACTIONS (2)
  - Photosensitivity reaction [Unknown]
  - Paraesthesia [Unknown]

NARRATIVE: CASE EVENT DATE: 2017
